FAERS Safety Report 16935839 (Version 1)
Quarter: 2019Q4

REPORT INFORMATION
  Report Type: Report from Study
  Country: None (occurrence: AU)
  Receive Date: 20191018
  Receipt Date: 20191018
  Transmission Date: 20200122
  Serious: Yes (Hospitalization)
  Sender: FDA-Public Use
  Company Number: AU-ABBVIE-19K-008-2964413-00

PATIENT
  Age: 27 Year
  Sex: Male

DRUGS (3)
  1. HUMIRA [Suspect]
     Active Substance: ADALIMUMAB
     Indication: CROHN^S DISEASE
     Route: 058
     Dates: end: 2016
  2. HUMIRA [Suspect]
     Active Substance: ADALIMUMAB
     Route: 058
     Dates: start: 20191010
  3. HUMIRA [Suspect]
     Active Substance: ADALIMUMAB
     Dosage: LOADING DOSE 80 MG
     Route: 058
     Dates: start: 20190926, end: 20190926

REACTIONS (4)
  - Weight decreased [Unknown]
  - Injection site pain [Unknown]
  - Brain injury [Not Recovered/Not Resolved]
  - Coma [Unknown]

NARRATIVE: CASE EVENT DATE: 201902
